FAERS Safety Report 18855786 (Version 4)
Quarter: 2022Q1

REPORT INFORMATION
  Report Type: Other
  Country: JP (occurrence: JP)
  Receive Date: 20210205
  Receipt Date: 20220228
  Transmission Date: 20220423
  Serious: Yes (Other)
  Sender: FDA-Public Use
  Company Number: JP-CHUGAI-A2021004293ROCHE

PATIENT
  Age: 7 Decade
  Sex: Female
  Weight: 79.8 kg

DRUGS (2)
  1. ENTRECTINIB [Suspect]
     Active Substance: ENTRECTINIB
     Indication: Non-small cell lung cancer
     Dosage: DOSAGE WAS UNCERTAIN.
     Route: 048
     Dates: start: 20210120, end: 20210203
  2. ENTRECTINIB [Suspect]
     Active Substance: ENTRECTINIB
     Route: 048
     Dates: start: 20210215, end: 20220124

REACTIONS (4)
  - Acute kidney injury [Not Recovered/Not Resolved]
  - Blood creatinine increased [Recovered/Resolved]
  - Dizziness [Not Recovered/Not Resolved]
  - Memory impairment [Not Recovered/Not Resolved]

NARRATIVE: CASE EVENT DATE: 20210816
